FAERS Safety Report 8924702 (Version 1)
Quarter: 2012Q4

REPORT INFORMATION
  Report Type: 
  Country: US (occurrence: None)
  Receive Date: 20121116
  Receipt Date: 20121116
  Transmission Date: 20130627
  Serious: Yes (Other)
  Sender: FDA-Public Use
  Company Number: 2012110026

PATIENT
  Sex: Male
  Weight: 92.99 kg

DRUGS (1)
  1. CONTAC [Suspect]
     Indication: COLD
     Route: 048
     Dates: end: 1997

REACTIONS (2)
  - Prostatomegaly [None]
  - Dysuria [None]
